FAERS Safety Report 9748249 (Version 1)
Quarter: 2013Q4

REPORT INFORMATION
  Report Type: Spontaneous
  Country: JP (occurrence: None)
  Receive Date: 20131209
  Receipt Date: 20131209
  Transmission Date: 20140711
  Serious: Yes (Other)
  Sender: FDA-Public Use
  Company Number: FK201305143

PATIENT
  Age: 23 Year
  Sex: Female

DRUGS (1)
  1. ACICLOVIR (MANUFACTURER UNKNOWN) (ACICLOVIR) (ACICLOVIR) [Suspect]
     Indication: VIRAL INFECTION
     Dosage: (NOT OTHERWISE SPECIFIED)
     Route: 042

REACTIONS (5)
  - Drug-induced liver injury [None]
  - Rash [None]
  - Blister [None]
  - Jaundice [None]
  - Hepatitis acute [None]
